FAERS Safety Report 4294604-7 (Version None)
Quarter: 2004Q1

REPORT INFORMATION
  Report Type: 
  Country: None (occurrence: None)
  Receive Date: 20040211
  Receipt Date: 20040129
  Transmission Date: 20041129
  Serious: Yes (Hospitalization, Other)
  Sender: FDA-Public Use
  Company Number: A-CH2003-04076

PATIENT
  Age: 58 Year
  Sex: Male
  Weight: 92.3 kg

DRUGS (6)
  1. TRACLEER [Suspect]
     Indication: PULMONARY HYPERTENSION
     Dosage: SEE IMAGE
     Route: 048
     Dates: start: 20021218, end: 20030101
  2. TRACLEER [Suspect]
     Indication: PULMONARY HYPERTENSION
     Dosage: SEE IMAGE
     Route: 048
     Dates: start: 20030101, end: 20031001
  3. TRACLEER [Suspect]
     Indication: PULMONARY HYPERTENSION
     Dosage: SEE IMAGE
     Route: 048
     Dates: start: 20031215
  4. WARFARIN SODIUM [Concomitant]
  5. ESOMEPRAZOLE [Concomitant]
  6. OXYGEN (OXYGEN) [Concomitant]

REACTIONS (1)
  - CHOLELITHIASIS [None]
